FAERS Safety Report 25215390 (Version 2)
Quarter: 2025Q2

REPORT INFORMATION
  Report Type: Report from Study
  Country: US (occurrence: US)
  Receive Date: 20250418
  Receipt Date: 20250514
  Transmission Date: 20250717
  Serious: Yes (Hospitalization)
  Sender: TAIHO ONCOLOGY INC
  Company Number: US-TAIHOP-2025-004166

PATIENT
  Age: 82 Year
  Sex: Female

DRUGS (1)
  1. INQOVI [Suspect]
     Active Substance: CEDAZURIDINE\DECITABINE
     Indication: Myelodysplastic syndrome
     Dosage: 135 MG (DECITABINE 35 MG AND CEDAZURIDINE 100 MG); DAYS 1-5 OF 28-DAY CYCLE; CYCLE UNKNOWN
     Route: 048
     Dates: start: 202503

REACTIONS (4)
  - White blood cell count decreased [Unknown]
  - Red blood cell count decreased [Unknown]
  - Blood calcium decreased [Unknown]
  - Hypoproteinaemia [Unknown]

NARRATIVE: CASE EVENT DATE: 20250414
